FAERS Safety Report 15882222 (Version 1)
Quarter: 2019Q1

REPORT INFORMATION
  Report Type: Spontaneous
  Country: US (occurrence: US)
  Receive Date: 20190128
  Receipt Date: 20190128
  Transmission Date: 20190417
  Serious: Yes (Other)
  Sender: FDA-Public Use
  Company Number: US-NAPPMUNDI-USA-2018-0144331

PATIENT
  Sex: Male

DRUGS (2)
  1. DILAUDID [Suspect]
     Active Substance: HYDROMORPHONE HYDROCHLORIDE
     Indication: MIGRAINE
     Route: 048
  2. IBUPROFEN. [Suspect]
     Active Substance: IBUPROFEN
     Indication: PAIN
     Route: 048

REACTIONS (4)
  - Drug abuse [Recovered/Resolved]
  - Inhibitory drug interaction [Recovered/Resolved]
  - Drug dependence [Recovered/Resolved]
  - Overdose [Recovered/Resolved]
